FAERS Safety Report 6223945-9 (Version None)
Quarter: 2009Q2

REPORT INFORMATION
  Report Type: 
  Country: None (occurrence: None)
  Receive Date: 20090612
  Receipt Date: 20090304
  Transmission Date: 20091009
  Serious: No
  Sender: FDA-Public Use
  Company Number: US-ABBOTT-09P-163-0560980-00

PATIENT
  Sex: Female
  Weight: 88.984 kg

DRUGS (4)
  1. HUMIRA [Suspect]
     Indication: PSORIASIS
     Route: 058
     Dates: start: 20090122
  2. XANAX [Concomitant]
     Indication: ANXIETY
  3. WELLBUTRIN [Concomitant]
     Indication: DRUG USE FOR UNKNOWN INDICATION
  4. LOMICTAL [Concomitant]
     Indication: DRUG USE FOR UNKNOWN INDICATION

REACTIONS (6)
  - BLOOD PRESSURE INCREASED [None]
  - EPISTAXIS [None]
  - HEADACHE [None]
  - INFLUENZA LIKE ILLNESS [None]
  - MENSTRUAL DISORDER [None]
  - VOMITING [None]
